FAERS Safety Report 9614326 (Version 1)
Quarter: 2013Q4

REPORT INFORMATION
  Report Type: Spontaneous
  Country: IT (occurrence: IT)
  Receive Date: 20131011
  Receipt Date: 20131011
  Transmission Date: 20140711
  Serious: Yes (Hospitalization)
  Sender: FDA-Public Use
  Company Number: IT-JNJFOC-20131000437

PATIENT
  Age: 70 Year
  Sex: Male

DRUGS (3)
  1. ZYTIGA [Suspect]
     Indication: PROSTATE CANCER STAGE IV
     Route: 048
  2. ZYTIGA [Suspect]
     Indication: PROSTATE CANCER STAGE IV
     Route: 048
     Dates: start: 20130515, end: 20130703
  3. DELTACORTENE [Concomitant]
     Indication: PREMEDICATION
     Route: 048
     Dates: start: 20130515, end: 20130703

REACTIONS (1)
  - Renal failure acute [Recovering/Resolving]
